FAERS Safety Report 6155229-1 (Version None)
Quarter: 2009Q2

REPORT INFORMATION
  Report Type: 
  Country: None (occurrence: None)
  Receive Date: 20090415
  Receipt Date: 20071010
  Transmission Date: 20091009
  Serious: Yes (Other)
  Sender: FDA-Public Use
  Company Number: US-ASTRAZENECA-2007UW16411

PATIENT
  Age: 42 Year
  Sex: Male
  Weight: 105.7 kg

DRUGS (21)
  1. SEROQUEL [Suspect]
     Indication: DEPRESSION
     Dosage: 10-20 MG
     Route: 048
     Dates: start: 20030101
  2. SEROQUEL [Suspect]
     Indication: SLEEP DISORDER
     Dosage: 10-20 MG
     Route: 048
     Dates: start: 20030101
  3. SEROQUEL [Suspect]
     Route: 048
     Dates: start: 20030121, end: 20030616
  4. SEROQUEL [Suspect]
     Route: 048
     Dates: start: 20030121, end: 20030616
  5. RISPERDAL [Concomitant]
     Indication: DEPRESSION
     Dates: start: 19990101, end: 20020124
  6. RISPERDAL [Concomitant]
  7. ZYPREXA [Concomitant]
     Dates: start: 20010101, end: 20020101
  8. NIFEDIPINE [Concomitant]
  9. METFORMIN HCL [Concomitant]
  10. GLYBURIDE [Concomitant]
  11. ACETAMINOPHEN [Concomitant]
  12. IBUPROFEN [Concomitant]
  13. ASPIRIN [Concomitant]
  14. WELLBUTRIN [Concomitant]
  15. BENADRYL [Concomitant]
  16. TRAZODONE HCL [Concomitant]
  17. TYLENOL [Concomitant]
  18. CAPTOPRIL [Concomitant]
  19. ATENOLOL [Concomitant]
  20. LIPITOR [Concomitant]
  21. REGLAN [Concomitant]

REACTIONS (37)
  - ABDOMINAL PAIN UPPER [None]
  - ANXIETY [None]
  - BACK PAIN [None]
  - CHEST DISCOMFORT [None]
  - CHEST PAIN [None]
  - COLONIC POLYP [None]
  - COUGH [None]
  - DEEP VEIN THROMBOSIS [None]
  - DENTAL CARIES [None]
  - DERMATITIS [None]
  - DIABETES MELLITUS [None]
  - DIABETIC NEPHROPATHY [None]
  - DYSPHAGIA [None]
  - DYSPNOEA [None]
  - EAR PAIN [None]
  - EPISTAXIS [None]
  - FLANK PAIN [None]
  - FOOD POISONING [None]
  - GASTRITIS [None]
  - HAEMORRHOIDS [None]
  - HALLUCINATION, AUDITORY [None]
  - HALLUCINATION, VISUAL [None]
  - HEADACHE [None]
  - INTERVERTEBRAL DISC DEGENERATION [None]
  - JOINT SWELLING [None]
  - LEUKOPLAKIA [None]
  - LIP PAIN [None]
  - MUSCLE INJURY [None]
  - NEUROPATHY PERIPHERAL [None]
  - OEDEMA PERIPHERAL [None]
  - PAIN IN EXTREMITY [None]
  - SKIN ULCER [None]
  - SPERM COUNT DECREASED [None]
  - TENDONITIS [None]
  - TINEA PEDIS [None]
  - VISION BLURRED [None]
  - WEIGHT DECREASED [None]
